FAERS Safety Report 23881028 (Version 1)
Quarter: 2024Q2

REPORT INFORMATION
  Report Type: Spontaneous
  Country: US (occurrence: None)
  Receive Date: 20240521
  Receipt Date: 20240521
  Transmission Date: 20240716
  Serious: No
  Sender: FDA-Public Use
  Company Number: None

PATIENT
  Age: 72 Year
  Sex: Female

DRUGS (1)
  1. TERIPARATIDE [Suspect]
     Active Substance: TERIPARATIDE
     Indication: Bone density abnormal
     Dosage: FREQUENCY : DAILY;?
     Route: 058
     Dates: start: 202402

REACTIONS (2)
  - Neck surgery [None]
  - Fall [None]
